FAERS Safety Report 15066190 (Version 4)
Quarter: 2018Q4

REPORT INFORMATION
  Report Type: Spontaneous
  Country: DE (occurrence: DE)
  Receive Date: 20180626
  Receipt Date: 20180824
  Transmission Date: 20190204
  Serious: Yes (Hospitalization)
  Sender: FDA-Public Use
  Company Number: DE-WEST-WARD PHARMACEUTICALS CORP.-DE-H14001-18-05135

PATIENT
  Age: 48 Year
  Sex: Male
  Weight: 76 kg

DRUGS (12)
  1. PLIAZON [Concomitant]
     Indication: PROPHYLAXIS
     Dosage: 3000 IU, QD
     Route: 061
     Dates: start: 20180516
  2. FLUOROURACIL. [Suspect]
     Active Substance: FLUOROURACIL
     Indication: COLORECTAL CANCER METASTATIC
     Dosage: 4650 MG, UNK
     Route: 042
     Dates: start: 20180516
  3. FLUOROURACIL. [Suspect]
     Active Substance: FLUOROURACIL
     Dosage: 800 MG, UNK
     Route: 040
     Dates: start: 20180516
  4. MONO EMBOLEX [Concomitant]
     Active Substance: CERTOPARIN SODIUM
     Indication: PROPHYLAXIS
     Dosage: 3000 IU, QD
     Route: 058
     Dates: start: 20180516
  5. FOLINIC ACID [Suspect]
     Active Substance: LEUCOVORIN
     Indication: COLORECTAL CANCER METASTATIC
     Dosage: 780 MG, UNK
     Route: 065
     Dates: start: 20180516
  6. FERROSANOL [Concomitant]
     Active Substance: FERROUS GLUCONATE
     Indication: ANAEMIA
     Dosage: 80 MG, TID TO 100 MG, QD ()
     Route: 048
     Dates: start: 20180514
  7. FERROSANOL [Concomitant]
     Active Substance: FERROUS GLUCONATE
     Dosage: 80 MG, TID TO 100 MG, QD ()
     Route: 048
     Dates: start: 20180514
  8. DOXY M [Concomitant]
     Indication: PROPHYLAXIS
     Dosage: 100 MG, QD
     Route: 048
     Dates: start: 20180516
  9. GLANDOMED [Concomitant]
     Indication: PROPHYLAXIS
     Dosage: 3000 IU, QD
     Route: 048
     Dates: start: 20180516
  10. OXALIPLATIN. [Suspect]
     Active Substance: OXALIPLATIN
     Indication: COLORECTAL CANCER METASTATIC
     Dosage: 165 MG, UNK
     Route: 065
     Dates: start: 20180516
  11. PANITUMUMAB [Suspect]
     Active Substance: PANITUMUMAB
     Indication: COLORECTAL CANCER METASTATIC
     Dosage: 460 MG, UNK
     Route: 042
     Dates: start: 20180516
  12. GLANDOMED [Concomitant]
     Dosage: 3000 IU, QD
     Route: 048
     Dates: start: 20180516

REACTIONS (8)
  - Dermatitis acneiform [Not Recovered/Not Resolved]
  - Mucosal inflammation [Not Recovered/Not Resolved]
  - Hypertension [Not Recovered/Not Resolved]
  - Epistaxis [Not Recovered/Not Resolved]
  - Constipation [Not Recovered/Not Resolved]
  - Fatigue [Not Recovered/Not Resolved]
  - Infection [Recovered/Resolved]
  - Lymphocyte count decreased [Recovered/Resolved]

NARRATIVE: CASE EVENT DATE: 20180517
